FAERS Safety Report 25418379 (Version 2)
Quarter: 2025Q3

REPORT INFORMATION
  Report Type: Report from Study
  Country: IR (occurrence: IR)
  Receive Date: 20250610
  Receipt Date: 20250723
  Transmission Date: 20251020
  Serious: Yes (Death, Hospitalization)
  Sender: ROCHE
  Company Number: IR-ROCHE-10000305000

PATIENT

DRUGS (2)
  1. RITUXIMAB [Suspect]
     Active Substance: RITUXIMAB
     Indication: Multiple sclerosis
     Route: 042
  2. RITUXIMAB [Suspect]
     Active Substance: RITUXIMAB
     Route: 042

REACTIONS (21)
  - Sepsis [Fatal]
  - Hot flush [Unknown]
  - Dyspnoea [Unknown]
  - Paraesthesia [Unknown]
  - Nausea [Unknown]
  - Headache [Unknown]
  - Myalgia [Unknown]
  - Pruritus [Unknown]
  - Rash [Unknown]
  - Palpitations [Unknown]
  - Pyrexia [Unknown]
  - Chills [Unknown]
  - Muscle spasms [Unknown]
  - Asthenia [Unknown]
  - Lethargy [Unknown]
  - Alopecia [Unknown]
  - Menstrual disorder [Unknown]
  - Hepatic enzyme increased [Unknown]
  - COVID-19 [Unknown]
  - Fatigue [Unknown]
  - Off label use [Unknown]
